APPROVED DRUG PRODUCT: STERILE WATER FOR INJECTION
Active Ingredient: STERILE WATER FOR INJECTION
Strength: 100% (5.2ML) **Federal Register determination that product was not discontinued or withdrawn for safety or effectiveness reasons**
Dosage Form/Route: LIQUID;N/A
Application: N018801 | Product #006
Applicant: HOSPIRA INC
Approved: May 2, 2023 | RLD: Yes | RS: Yes | Type: RX